FAERS Safety Report 4530598-4 (Version None)
Quarter: 2004Q4

REPORT INFORMATION
  Report Type: 
  Country: None (occurrence: None)
  Receive Date: 20041216
  Receipt Date: 20041102
  Transmission Date: 20050328
  Serious: Yes (Life-Threatening, Other)
  Sender: FDA-Public Use
  Company Number: 2004241756NO

PATIENT
  Age: 68 Year
  Sex: Male

DRUGS (8)
  1. BEXTRA [Suspect]
     Indication: ARTHRALGIA
     Dosage: 10 MG (10 MG, QD), ORAL
     Route: 048
     Dates: start: 20040210, end: 20040215
  2. ALBYL-ENTEROSOLUBILE (ACETYLSALICYLIC ACID, MAGNESIUM OXIDE) [Suspect]
     Indication: CORONARY ARTERY DISEASE
     Dosage: 160 MEQ (160 MG, QD), ORAL
     Route: 048
     Dates: start: 20040210, end: 20040215
  3. IPRATROPIUM BROMIDE [Concomitant]
  4. PRAVASTATIN SODIUM [Concomitant]
  5. ESOMEPRAZOLE (ESOMEPRAZOLE) [Concomitant]
  6. PREDNISOLONE [Concomitant]
  7. TAMSULOSIN HYDROCHLORIDE (TAMSULOSIN HYDROCHLORIDE) [Concomitant]
  8. CANDESARTAN CILEXETIL (CANDESARTAN CILEXETIL) [Concomitant]

REACTIONS (3)
  - GASTRIC ULCER [None]
  - MELAENA [None]
  - TRANSIENT ISCHAEMIC ATTACK [None]
